FAERS Safety Report 23584100 (Version 2)
Quarter: 2025Q4

REPORT INFORMATION
  Report Type: Spontaneous
  Country: EU (occurrence: EU)
  Receive Date: 20240301
  Receipt Date: 20251120
  Transmission Date: 20260117
  Serious: Yes (Hospitalization)
  Sender: AUROBINDO
  Company Number: EU-MYLANLABS-2024M1000414

PATIENT
  Age: 32 Year
  Sex: Female

DRUGS (10)
  1. DIPHENHYDRAMINE [Suspect]
     Active Substance: DIPHENHYDRAMINE
     Indication: Symptomatic treatment
     Dosage: UNK
  2. HYDROXYZINE [Suspect]
     Active Substance: HYDROXYZINE HYDROCHLORIDE
     Indication: Symptomatic treatment
     Dosage: UNK
  3. PREDNISOLONE [Suspect]
     Active Substance: PREDNISOLONE
     Indication: Type IV hypersensitivity reaction
     Dosage: UNK, DOSE REDUCED
     Route: 065
  4. PREDNISOLONE [Suspect]
     Active Substance: PREDNISOLONE
     Dosage: 20 MILLIGRAM
     Route: 065
  5. PREDNISOLONE [Suspect]
     Active Substance: PREDNISOLONE
     Dosage: UNK, LATER CONTINUED AT INITIAL DOSE
     Route: 065
  6. CALAMINE [Suspect]
     Active Substance: CALAMINE\FERRIC OXIDE RED\ZINC OXIDE
     Indication: Symptomatic treatment
     Dosage: UNK
  7. DALTEPARIN [Suspect]
     Active Substance: DALTEPARIN
     Indication: Pelvic venous thrombosis
     Dosage: 12500 INTERNATIONAL UNIT, ONCE A DAY (6000 INTERNATIONAL UNIT, BID)
     Route: 065
  8. DALTEPARIN [Suspect]
     Active Substance: DALTEPARIN
     Dosage: 6600 INTERNATIONAL UNIT, TWO TIMES A DAY
     Route: 065
  9. ENOXAPARIN [Suspect]
     Active Substance: ENOXAPARIN
     Indication: Pelvic venous thrombosis
     Dosage: 140 MILLIGRAM, ONCE A DAY (70 MILLIGRAM, BID)
  10. TINZAPARIN [Suspect]
     Active Substance: TINZAPARIN
     Indication: Pelvic venous thrombosis
     Dosage: 1000 INTERNATIONAL UNIT, ONCE A DAY
     Route: 065

REACTIONS (2)
  - Type IV hypersensitivity reaction [Recovered/Resolved]
  - Maternal exposure during pregnancy [Recovered/Resolved]
